FAERS Safety Report 20989515 (Version 2)
Quarter: 2022Q2

REPORT INFORMATION
  Report Type: Report from Study
  Country: CN (occurrence: CN)
  Receive Date: 20220621
  Receipt Date: 20220627
  Transmission Date: 20220721
  Serious: Yes (Death, Other)
  Sender: FDA-Public Use
  Company Number: CN-TAKEDA-2022TUS033846

PATIENT
  Age: 56 Year
  Sex: Female
  Weight: 74 kg

DRUGS (12)
  1. BRENTUXIMAB VEDOTIN [Suspect]
     Active Substance: BRENTUXIMAB VEDOTIN
     Indication: T-cell lymphoma
     Dosage: 133 MILLIGRAM, Q4WEEKS
     Route: 041
     Dates: start: 20211221
  2. BRENTUXIMAB VEDOTIN [Suspect]
     Active Substance: BRENTUXIMAB VEDOTIN
     Indication: Anaplastic large cell lymphoma T- and null-cell types
  3. METHYLPREDNISOLONE SODIUM SUCCINATE [Suspect]
     Active Substance: METHYLPREDNISOLONE SODIUM SUCCINATE
     Indication: Lymphoma
     Dosage: 80 MILLIGRAM, QD
     Route: 042
     Dates: start: 20211221, end: 20211225
  4. CYCLOPHOSPHAMIDE [Suspect]
     Active Substance: CYCLOPHOSPHAMIDE
     Indication: Lymphoma
     Dosage: 1380 MILLIGRAM, QD
     Route: 042
     Dates: start: 20211221, end: 20211221
  5. DOXORUBICIN HYDROCHLORIDE [Suspect]
     Active Substance: DOXORUBICIN HYDROCHLORIDE
     Indication: Lymphoma
     Dosage: 55 MILLIGRAM, QD
     Route: 042
     Dates: start: 20211221, end: 20211221
  6. LEUCOGEN [Concomitant]
     Active Substance: LEUCOGEN
     Indication: White blood cell count decreased
     Dosage: 20 MILLIGRAM, TID
     Route: 048
     Dates: start: 202112, end: 2022
  7. OMEPRAZOLE [Concomitant]
     Active Substance: OMEPRAZOLE
     Indication: Prophylaxis
     Dosage: UNK UNK, QD
     Route: 048
     Dates: start: 202112, end: 2022
  8. ENTECAVIR [Concomitant]
     Active Substance: ENTECAVIR
     Indication: Lymphoma
     Dosage: 0.5 MILLIGRAM, QD
     Route: 048
     Dates: start: 202112, end: 2022
  9. COMPOUND METHOXYPHENAMINE [Concomitant]
     Indication: Lymphoma
     Dosage: UNK UNK, TID
     Route: 048
     Dates: start: 202112, end: 2022
  10. SULFAMETHOXAZOLE [Concomitant]
     Active Substance: SULFAMETHOXAZOLE
     Indication: Prophylaxis
     Dosage: UNK UNK, QD
     Route: 048
     Dates: start: 202112, end: 2022
  11. ACYCLOVIR [Concomitant]
     Active Substance: ACYCLOVIR
     Indication: Prophylaxis
     Dosage: 200 MILLIGRAM, BID
     Route: 048
     Dates: start: 202112, end: 2022
  12. ACETYLCYSTEINE [Concomitant]
     Active Substance: ACETYLCYSTEINE
     Indication: Prophylaxis
     Dosage: UNK UNK, QD
     Route: 048
     Dates: start: 202112, end: 2022

REACTIONS (3)
  - Cytomegalovirus infection [Fatal]
  - Neutrophil count decreased [Not Recovered/Not Resolved]
  - Off label use [Unknown]

NARRATIVE: CASE EVENT DATE: 20211221
